FAERS Safety Report 6528002-X (Version None)
Quarter: 2010Q1

REPORT INFORMATION
  Report Type: 
  Country: None (occurrence: None)
  Receive Date: 20100105
  Receipt Date: 20100105
  Transmission Date: 20100710
  Serious: Yes (Other)
  Sender: FDA-Public Use
  Company Number: None

PATIENT
  Sex: Male
  Weight: 72 kg

DRUGS (1)
  1. FERAHEME [Suspect]
     Indication: NEPHROGENIC ANAEMIA
     Dosage: FERAHEME-FERUMOXYTOL INJECTION 1 OF 2 IV BOLUS
     Route: 040
     Dates: start: 20090102, end: 20090102

REACTIONS (3)
  - PROCEDURAL HYPOTENSION [None]
  - UNRESPONSIVE TO STIMULI [None]
  - VASCULAR GRAFT THROMBOSIS [None]
